FAERS Safety Report 19503194 (Version 4)
Quarter: 2022Q2

REPORT INFORMATION
  Report Type: Spontaneous
  Country: US (occurrence: None)
  Receive Date: 20210707
  Receipt Date: 20220509
  Transmission Date: 20220721
  Serious: Yes (Death, Other)
  Sender: FDA-Public Use
  Company Number: 2021A593724

PATIENT
  Age: 58 Year
  Sex: Male

DRUGS (43)
  1. NEXIUM [Suspect]
     Active Substance: ESOMEPRAZOLE MAGNESIUM
     Indication: Gastrooesophageal reflux disease
     Route: 048
     Dates: start: 1994, end: 2017
  2. NEXIUM [Suspect]
     Active Substance: ESOMEPRAZOLE MAGNESIUM
     Indication: Gastrooesophageal reflux disease
     Route: 048
     Dates: start: 2001, end: 2017
  3. NEXIUM [Suspect]
     Active Substance: ESOMEPRAZOLE MAGNESIUM
     Indication: Gastrooesophageal reflux disease
     Dosage: GENERIC
     Route: 065
     Dates: start: 2017
  4. PRILOSEC [Suspect]
     Active Substance: OMEPRAZOLE MAGNESIUM
     Indication: Gastrooesophageal reflux disease
     Route: 048
     Dates: start: 1994, end: 2017
  5. PRILOSEC [Suspect]
     Active Substance: OMEPRAZOLE MAGNESIUM
     Indication: Gastrooesophageal reflux disease
     Route: 048
     Dates: start: 1994, end: 2017
  6. PRILOSEC [Suspect]
     Active Substance: OMEPRAZOLE MAGNESIUM
     Indication: Gastrooesophageal reflux disease
     Dosage: GENERIC
     Route: 065
     Dates: start: 2011
  7. PRILOSEC OTC [Suspect]
     Active Substance: OMEPRAZOLE MAGNESIUM
     Indication: Gastrooesophageal reflux disease
     Route: 048
     Dates: start: 1994, end: 2017
  8. PRILOSEC OTC [Suspect]
     Active Substance: OMEPRAZOLE MAGNESIUM
     Indication: Gastrooesophageal reflux disease
     Dosage: DOSAGE AS RECOMMENDED
     Route: 048
     Dates: start: 2003, end: 2017
  9. PRILOSEC OTC [Suspect]
     Active Substance: OMEPRAZOLE MAGNESIUM
     Indication: Gastrooesophageal reflux disease
     Dosage: DOSAGE AS RECOMMENDED
     Route: 048
     Dates: start: 2003, end: 2017
  10. PANTOPRAZOLE [Suspect]
     Active Substance: PANTOPRAZOLE
     Indication: Gastrooesophageal reflux disease
     Dosage: GENERIC
     Route: 065
     Dates: start: 2017
  11. PEPCID [Concomitant]
     Active Substance: FAMOTIDINE
  12. ZANTAC [Concomitant]
     Active Substance: RANITIDINE HYDROCHLORIDE
  13. SIMVASTATIN [Concomitant]
     Active Substance: SIMVASTATIN
     Indication: Blood cholesterol
     Dates: start: 20171027
  14. KETOCONAZOLE [Concomitant]
     Active Substance: KETOCONAZOLE
  15. VENLAFAXINE [Concomitant]
     Active Substance: VENLAFAXINE HYDROCHLORIDE
  16. FOLIC ACID [Concomitant]
     Active Substance: FOLIC ACID
  17. GABAPENTIN [Concomitant]
     Active Substance: GABAPENTIN
     Dates: start: 20170728
  18. AMLODIPINE [Concomitant]
     Active Substance: AMLODIPINE BESYLATE
     Dates: start: 20170317
  19. CIPROFLOXACIN [Concomitant]
     Active Substance: CIPROFLOXACIN
     Dates: start: 20170825
  20. DICLOFENAC [Concomitant]
     Active Substance: DICLOFENAC
  21. ENOXAPARIN [Concomitant]
     Active Substance: ENOXAPARIN
     Dates: start: 20171006
  22. RIFAXIMIN [Concomitant]
     Active Substance: RIFAXIMIN
  23. TRAMADOL [Concomitant]
     Active Substance: TRAMADOL
     Indication: Pain
     Dates: start: 2004
  24. ONDANSETRON [Concomitant]
     Active Substance: ONDANSETRON
  25. LISINOPRIL [Concomitant]
     Active Substance: LISINOPRIL
     Indication: Blood pressure measurement
  26. SILDENAFIL [Concomitant]
     Active Substance: SILDENAFIL
  27. HEPARIN [Concomitant]
     Active Substance: HEPARIN SODIUM
  28. OXYCODONE [Concomitant]
     Active Substance: OXYCODONE
  29. HYDROCODONE BITARTRATE AND ACETAMINOPHEN [Concomitant]
     Active Substance: ACETAMINOPHEN\HYDROCODONE BITARTRATE
  30. CYCLOBENZAPRINE [Concomitant]
     Active Substance: CYCLOBENZAPRINE
     Dates: start: 20170317
  31. NAPROXEN [Concomitant]
     Active Substance: NAPROXEN
  32. METFORMIN [Concomitant]
     Active Substance: METFORMIN HYDROCHLORIDE
  33. LIDOCAINE [Concomitant]
     Active Substance: LIDOCAINE
     Dates: start: 20171019
  34. AMITRIPTYLINE [Concomitant]
     Active Substance: AMITRIPTYLINE
     Indication: Depression
     Dates: start: 20171019
  35. GLIPIZIDE [Concomitant]
     Active Substance: GLIPIZIDE
     Dates: start: 20171006
  36. FENTANYL [Concomitant]
     Active Substance: FENTANYL
     Dates: start: 20171019
  37. MELOXICAM [Concomitant]
     Active Substance: MELOXICAM
     Dates: start: 20171019
  38. CODEINE [Concomitant]
     Active Substance: CODEINE
     Dates: start: 20171019
  39. TRAZODONE [Concomitant]
     Active Substance: TRAZODONE HYDROCHLORIDE
     Dates: start: 20171019
  40. FLUNISOLIDE [Concomitant]
     Active Substance: FLUNISOLIDE
     Dates: start: 20171019
  41. TRIMETHOPRIM [Concomitant]
     Active Substance: TRIMETHOPRIM
     Dates: start: 20171019
  42. PEPCID AC [Concomitant]
     Active Substance: FAMOTIDINE
  43. ZANTAC [Concomitant]
     Active Substance: RANITIDINE HYDROCHLORIDE

REACTIONS (6)
  - Acute myocardial infarction [Fatal]
  - Acute kidney injury [Fatal]
  - Hepatic cirrhosis [Fatal]
  - Chronic kidney disease [Unknown]
  - End stage renal disease [Unknown]
  - Renal failure [Unknown]

NARRATIVE: CASE EVENT DATE: 20170101
